FAERS Safety Report 4705929-2 (Version None)
Quarter: 2005Q2

REPORT INFORMATION
  Report Type: 
  Country: None (occurrence: None)
  Receive Date: 20050629
  Receipt Date: 20050620
  Transmission Date: 20051028
  Serious: Yes (Other)
  Sender: FDA-Public Use
  Company Number: 11624

PATIENT
  Age: 65 Year
  Sex: Male
  Weight: 100.2449 kg

DRUGS (4)
  1. CYTARABINE [Suspect]
     Indication: ACUTE MYELOID LEUKAEMIA
     Dosage: 100 MG/M2
     Dates: start: 20050502
  2. DAUNORUBICIN HCL [Suspect]
     Indication: ACUTE MYELOID LEUKAEMIA
     Dosage: 45 MG/M2
     Dates: start: 20050502
  3. MDR FORMULATION [Suspect]
     Indication: ACUTE MYELOID LEUKAEMIA
     Dosage: 550 MG
     Dates: start: 20050502
  4. ALLOPRIM [Concomitant]

REACTIONS (8)
  - ARRHYTHMIA SUPRAVENTRICULAR [None]
  - FATIGUE [None]
  - FEBRILE NEUTROPENIA [None]
  - HYPOTENSION [None]
  - LETHARGY [None]
  - PANCREATITIS [None]
  - PNEUMONITIS [None]
  - RENAL IMPAIRMENT [None]
